FAERS Safety Report 8301012-8 (Version None)
Quarter: 2012Q2

REPORT INFORMATION
  Report Type: 
  Country: None (occurrence: None)
  Receive Date: 20120420
  Receipt Date: 20120413
  Transmission Date: 20120825
  Serious: Yes (Hospitalization, Other)
  Sender: FDA-Public Use
  Company Number: US-BAYER-2011-122129

PATIENT
  Age: 23 Year
  Sex: Female
  Weight: 138 kg

DRUGS (9)
  1. PRENATAL VITAMINS [VIT C,B5,B12,D2,B3,B6,RETINOL PALMIT,B2,B1 MONO [Concomitant]
     Dosage: UNK
     Dates: start: 20110925
  2. FENUGRENE [Concomitant]
     Dosage: UNK
     Dates: start: 20110925
  3. VENTOLIN [Concomitant]
     Dosage: UNK
     Dates: start: 20110728
  4. CLARITIN [Concomitant]
     Dosage: UNK
     Dates: start: 20110925
  5. ORTHO MICRONOR-28 [Concomitant]
     Dosage: 0.35 MG, UNK
  6. DROSPIRENONE AND ETHINYL ESTRADIOL [Suspect]
     Indication: CONTRACEPTION
     Dosage: UNK
     Dates: start: 20070101, end: 20100901
  7. YASMIN [Suspect]
     Indication: CONTRACEPTION
     Dosage: UNK
     Dates: start: 20070101, end: 20100901
  8. PRILOSEC [Concomitant]
     Dosage: UNK
     Dates: start: 20110925
  9. VICODIN [Concomitant]
     Dosage: UNK
     Dates: start: 20110925

REACTIONS (8)
  - EMOTIONAL DISTRESS [None]
  - ANHEDONIA [None]
  - CHOLECYSTITIS CHRONIC [None]
  - CHOLELITHIASIS [None]
  - INJURY [None]
  - PAIN [None]
  - GENERAL PHYSICAL HEALTH DETERIORATION [None]
  - ANXIETY [None]
